FAERS Safety Report 5206691-X (Version None)
Quarter: 2006Q4

REPORT INFORMATION
  Report Type: 
  Country: None (occurrence: None)
  Receive Date: 20061030
  Receipt Date: 20060824
  Transmission Date: 20070319
  Serious: No
  Sender: FDA-Public Use
  Company Number: 256352

PATIENT
  Age: 70 Year
  Sex: Female
  Weight: 54.4 kg

DRUGS (9)
  1. LEVEMIR [Suspect]
     Indication: INSULIN-REQUIRING TYPE II DIABETES MELLITUS
     Dosage: 45 IU, QD, SUBCUTANEOUS
     Route: 058
     Dates: start: 20060101
  2. ALTACE [Concomitant]
  3. LOXIPRONAL (LOXOPROFEN SODIUM) [Concomitant]
  4. SYNTHROID [Concomitant]
  5. FUROSEMIDE [Concomitant]
  6. DIOVAN [Concomitant]
  7. PREMARIN [Concomitant]
  8. LIPITOR [Concomitant]
  9. HUMALOG [Concomitant]

REACTIONS (1)
  - BLOOD GLUCOSE FLUCTUATION [None]
